FAERS Safety Report 8481615 (Version 10)
Quarter: 2013Q1

REPORT INFORMATION
  Report Type: Spontaneous
  Country: IE (occurrence: IE)
  Receive Date: 20120329
  Receipt Date: 20130110
  Transmission Date: 20140127
  Serious: Yes (Hospitalization, Other)
  Sender: FDA-Public Use
  Company Number: PHFR2012IE001952

PATIENT
  Age: 54 Year
  Sex: Female

DRUGS (6)
  1. CLOZARIL [Suspect]
     Indication: SCHIZOPHRENIA
     Dosage: 400 MG, (150 MG MANE AND 250 MG NOCTE)
     Route: 048
     Dates: start: 20020510
  2. SPIRIVA [Concomitant]
     Indication: CHRONIC OBSTRUCTIVE PULMONARY DISEASE
     Dosage: 18 MCG
     Route: 048
  3. EPILIM CHRONO [Concomitant]
     Indication: AFFECTIVE DISORDER
     Dosage: 1000 MG
     Route: 048
  4. FLUOXETIN [Concomitant]
     Indication: AFFECTIVE DISORDER
     Dosage: 60 MG, UNK
     Route: 048
  5. ARIPIPRAZOLE [Concomitant]
     Indication: PSYCHOTIC DISORDER
     Dosage: 10 MG, UNK
  6. DIAZEPAM [Concomitant]
     Indication: ANXIETY
     Dosage: 2 MG, BID
     Route: 048

REACTIONS (10)
  - Lung neoplasm [Unknown]
  - Non-small cell lung cancer [Recovered/Resolved]
  - Squamous cell carcinoma [Unknown]
  - Lower respiratory tract infection [Recovered/Resolved]
  - Dyspnoea [Recovered/Resolved with Sequelae]
  - Cough [Recovered/Resolved]
  - Neutropenia [Recovered/Resolved]
  - Constipation [Recovered/Resolved]
  - Haemoglobin decreased [Recovered/Resolved]
  - White blood cell count decreased [Recovered/Resolved]
